FAERS Safety Report 11507369 (Version 1)
Quarter: 2015Q3

REPORT INFORMATION
  Report Type: Report from Study
  Country: US (occurrence: US)
  Receive Date: 20150915
  Receipt Date: 20150915
  Transmission Date: 20151125
  Serious: Yes (Hospitalization)
  Sender: FDA-Public Use
  Company Number: US-PFIZER INC-2015305538

PATIENT
  Age: 55 Year
  Sex: Male
  Weight: 92.7 kg

DRUGS (5)
  1. LEUCOVORIN CALCIUM. [Concomitant]
     Active Substance: LEUCOVORIN CALCIUM
     Indication: ADENOCARCINOMA OF COLON
     Dosage: 400 MG/M2 IV OVER 2 HOURS ON DAY 1
     Route: 042
  2. 5-FU [Concomitant]
     Active Substance: FLUOROURACIL
     Indication: ADENOCARCINOMA OF COLON
     Dosage: 400 MG/M2 IVP ON DAY 1
     Route: 040
  3. 5-FU [Concomitant]
     Active Substance: FLUOROURACIL
     Dosage: 2400 MG/M2 IV OVER 46-48 HOURS ON DAY 1
     Route: 042
  4. LYRICA [Suspect]
     Active Substance: PREGABALIN
     Dosage: UNK
  5. ELOXATIN [Concomitant]
     Active Substance: OXALIPLATIN
     Indication: ADENOCARCINOMA OF COLON
     Dosage: 85 MG/M2 IV OVER 2 HOURS ON DAY 1
     Route: 042

REACTIONS (1)
  - Myocardial infarction [Unknown]

NARRATIVE: CASE EVENT DATE: 20150810
